FAERS Safety Report 7601934-7 (Version None)
Quarter: 2011Q3

REPORT INFORMATION
  Report Type: 
  Country: None (occurrence: None)
  Receive Date: 20110711
  Receipt Date: 20110707
  Transmission Date: 20111222
  Serious: No
  Sender: FDA-Public Use
  Company Number: US-PFIZER INC-2011154522

PATIENT
  Sex: Female
  Weight: 113 kg

DRUGS (9)
  1. SYNTHROID [Concomitant]
     Indication: THYROID DISORDER
     Dosage: DAILY
     Route: 048
  2. ASPIRIN [Concomitant]
     Indication: HEADACHE
     Dosage: UNK
     Route: 048
  3. OMEPRAZOLE [Concomitant]
     Dosage: 20 MG, DAILY
     Route: 048
  4. LORTAB [Concomitant]
     Route: 048
  5. ALPRAZOLAM [Suspect]
     Indication: PANIC ATTACK
     Dosage: 2 MG, 3X/DAY
     Route: 048
     Dates: start: 20110101
  6. SERTRALINE HYDROCHLORIDE [Concomitant]
     Indication: DEPRESSION
     Dosage: 200 MG, DAILY
     Route: 048
  7. SPRINTEC [Concomitant]
     Indication: CONTRACEPTION
     Dosage: UNK
  8. PROMETHAZINE [Concomitant]
     Dosage: 25 MG, AS NEEDED
     Route: 048
  9. ALPRAZOLAM [Suspect]
     Indication: MENTAL DISORDER

REACTIONS (1)
  - DRUG INEFFECTIVE [None]
